FAERS Safety Report 9682887 (Version 2)
Quarter: 2013Q4

REPORT INFORMATION
  Report Type: Report from Study
  Country: US (occurrence: US)
  Receive Date: 20131112
  Receipt Date: 20131112
  Transmission Date: 20140711
  Serious: Yes (Hospitalization)
  Sender: FDA-Public Use
  Company Number: US-ABBVIE-09P-163-0613158-05

PATIENT
  Age: 32 Year
  Sex: Female
  Weight: 59.02 kg

DRUGS (29)
  1. HUMIRA [Suspect]
     Indication: CROHN^S DISEASE
     Route: 058
     Dates: start: 20080401, end: 20090211
  2. HUMIRA [Suspect]
     Route: 058
     Dates: start: 20090317
  3. REMERON [Concomitant]
     Indication: DEPRESSION
     Dates: start: 200709
  4. XANAX [Concomitant]
     Indication: ANXIETY
     Dates: start: 200406
  5. TYLENOL [Concomitant]
     Indication: ARTHRALGIA
     Dates: start: 200309
  6. PREDNISONE [Concomitant]
     Indication: CROHN^S DISEASE
     Dosage: 30 MG AND TAPER TO 15 MG
     Dates: start: 20080401, end: 200805
  7. PREDNISONE [Concomitant]
     Indication: CROHN^S DISEASE
     Dates: start: 20081101, end: 200901
  8. PREDNISONE [Concomitant]
     Dates: start: 200805, end: 200908
  9. DONNATAL [Concomitant]
     Indication: ABDOMINAL PAIN
     Dates: start: 20081101, end: 200812
  10. DESIPRAMINE [Concomitant]
     Indication: DEPRESSION
     Dates: start: 200901, end: 200902
  11. CIPROFLOXACIN [Concomitant]
     Indication: INFECTION
     Dates: start: 200811, end: 200812
  12. FENTANYL [Concomitant]
     Indication: ABDOMINAL PAIN
     Dates: start: 200812, end: 200905
  13. COUMADIN [Concomitant]
     Indication: DEEP VEIN THROMBOSIS
     Dates: start: 200812, end: 200906
  14. DILAUDID [Concomitant]
     Indication: ABDOMINAL PAIN
     Dates: start: 200812, end: 200905
  15. VITAMIN D [Concomitant]
     Indication: VITAMIN D DEFICIENCY
     Dates: start: 200811
  16. ROWASA [Concomitant]
     Indication: CROHN^S DISEASE
     Dates: start: 200811, end: 200905
  17. ROWASA [Concomitant]
     Dates: start: 200905
  18. LIDOCAINE [Concomitant]
     Indication: ABDOMINAL PAIN
     Dosage: 1 PATCH (5%)
     Dates: start: 200811
  19. MIRALAX [Concomitant]
     Indication: CONSTIPATION
     Dates: start: 200811
  20. COLACE [Concomitant]
     Indication: CONSTIPATION
     Dates: start: 200811
  21. CYMBALTA [Concomitant]
     Indication: DEPRESSION
     Dates: start: 200811, end: 200812
  22. ALBUTEROL [Concomitant]
     Indication: ASTHMA
     Dosage: INHALER
     Dates: start: 20081030
  23. FLEXERIL [Concomitant]
     Indication: PAIN
     Dates: start: 200810
  24. ATARAX [Concomitant]
     Indication: ANXIETY
     Route: 030
     Dates: start: 20081030, end: 20081118
  25. INSULIN [Concomitant]
     Indication: DIABETES MELLITUS
     Dates: start: 20081030, end: 20081118
  26. REGLAN [Concomitant]
     Indication: NAUSEA
     Route: 042
     Dates: start: 20081030, end: 20081206
  27. ZOFRAN [Concomitant]
     Indication: NAUSEA
     Route: 042
     Dates: start: 20081030, end: 20081206
  28. PROTONIX [Concomitant]
     Indication: GASTROOESOPHAGEAL REFLUX DISEASE
     Dates: start: 20081030, end: 200812
  29. VENTOLIN [Concomitant]
     Indication: ASTHMA

REACTIONS (1)
  - Pneumonitis [Recovered/Resolved]
